FAERS Safety Report 8849480 (Version 2)
Quarter: 2012Q4

REPORT INFORMATION
  Report Type: Spontaneous
  Country: US (occurrence: None)
  Receive Date: 20121017
  Receipt Date: 20121024
  Transmission Date: 20130627
  Serious: Yes (Hospitalization, Other)
  Sender: FDA-Public Use
  Company Number: 2012AP003362

PATIENT
  Sex: Male

DRUGS (9)
  1. CYCLOSPORINE [Suspect]
     Indication: IMMUNOSUPPRESSANT DRUG THERAPY
     Dosage: present
  2. MYCOPHENOLATE MOFETIL [Suspect]
     Indication: IMMUNOSUPPRESSANT DRUG THERAPY
     Dosage: present
  3. AZATHIOPRINE [Suspect]
     Indication: IMMUNOSUPPRESSANT DRUG THERAPY
  4. ANTITHYMOCYTE IMMUNOGLOBULIN [Suspect]
     Indication: IMMUNOSUPPRESSANT DRUG THERAPY
  5. SOLU-MEDROL [Suspect]
     Indication: IMMUNOSUPPRESSANT DRUG THERAPY
  6. PREDNISONE [Suspect]
     Indication: IMMUNOSUPPRESSANT DRUG THERAPY
  7. GANCICLOVIR [Concomitant]
  8. CYTOMEGALOVIRUS IMMUNE [Concomitant]
  9. GLOBULIN [Concomitant]

REACTIONS (3)
  - Post transplant lymphoproliferative disorder [None]
  - Grand mal convulsion [None]
  - Diffuse large B-cell lymphoma [None]
